FAERS Safety Report 5264405-1 (Version None)
Quarter: 2007Q1

REPORT INFORMATION
  Report Type: 
  Country: None (occurrence: None)
  Receive Date: 20070309
  Receipt Date: 20070223
  Transmission Date: 20070707
  Serious: Yes (Hospitalization)
  Sender: FDA-Public Use
  Company Number: 2007VX000729

PATIENT
  Age: 56 Year
  Sex: Male
  Weight: 61.2356 kg

DRUGS (6)
  1. INTERFERON ALFACON-1 [Suspect]
     Indication: HEPATITIS C
     Dosage: SEE IMAGE
     Route: 058
     Dates: start: 20060614, end: 20061018
  2. INTERFERON ALFACON-1 [Suspect]
     Indication: HEPATITIS C
     Dosage: SEE IMAGE
     Route: 058
     Dates: start: 20070202
  3. HYDROMORPHONE HCL [Concomitant]
  4. SULAR [Concomitant]
  5. AMITRIPTYLINE HCL [Concomitant]
  6. SOMA [Concomitant]

REACTIONS (5)
  - BONE DISORDER [None]
  - BONE PAIN [None]
  - NERVE COMPRESSION [None]
  - PELVIC PAIN [None]
  - SPINAL FUSION SURGERY [None]
